FAERS Safety Report 16372609 (Version 2)
Quarter: 2019Q2

REPORT INFORMATION
  Report Type: Spontaneous
  Country: CH (occurrence: CH)
  Receive Date: 20190530
  Receipt Date: 20190620
  Transmission Date: 20190711
  Serious: Yes (Other)
  Sender: FDA-Public Use
  Company Number: CH-OTSUKA-2019_015556

PATIENT
  Age: 61 Year
  Sex: Female
  Weight: 73.7 kg

DRUGS (5)
  1. REXULTI [Suspect]
     Active Substance: BREXPIPRAZOLE
     Indication: MAJOR DEPRESSION
  2. REXULTI [Suspect]
     Active Substance: BREXPIPRAZOLE
     Indication: PSYCHOTIC DISORDER
     Dosage: 3 MG, UNK
     Route: 065
     Dates: start: 20190411, end: 20190423
  3. ABILIFY [Suspect]
     Active Substance: ARIPIPRAZOLE
     Indication: PSYCHOTIC DISORDER
     Dosage: 15 MG, UNK
     Route: 065
     Dates: start: 20190226
  4. ABILIFY [Suspect]
     Active Substance: ARIPIPRAZOLE
     Indication: MAJOR DEPRESSION
     Dosage: 10 MG, UNK
     Route: 065
     Dates: end: 20190411
  5. ABILIFY [Suspect]
     Active Substance: ARIPIPRAZOLE
     Dosage: 15 MG, UNK
     Route: 065
     Dates: start: 20190423

REACTIONS (8)
  - Depression [Recovering/Resolving]
  - Restlessness [Recovering/Resolving]
  - Restlessness [Recovering/Resolving]
  - Product use in unapproved indication [Not Recovered/Not Resolved]
  - Psychotic symptom [Recovering/Resolving]
  - Tremor [Recovering/Resolving]
  - Parkinsonism [Recovering/Resolving]
  - Drug dose titration not performed [Unknown]

NARRATIVE: CASE EVENT DATE: 20190309
